FAERS Safety Report 10046357 (Version 1)
Quarter: 2014Q1

REPORT INFORMATION
  Report Type: Spontaneous
  Country: US (occurrence: US)
  Receive Date: 20140331
  Receipt Date: 20140331
  Transmission Date: 20141002
  Serious: No
  Sender: FDA-Public Use
  Company Number: US-BIOGENIDEC-2014BI027392

PATIENT
  Sex: Male
  Weight: 81 kg

DRUGS (18)
  1. TECFIDERA [Suspect]
     Indication: PRODUCT USED FOR UNKNOWN INDICATION
  2. TIZANIDINE [Concomitant]
  3. ACETAMINOPHEN HYDROCODONE BITARTRATE [Concomitant]
     Indication: PAIN
  4. ACETAMINOPHEN HYDROCODONE BITARTRATE [Concomitant]
     Indication: PAIN
  5. ASPIRIN [Concomitant]
  6. FISH OIL THERAPEUTIC MULTIPLE VITAMIN WITH MINERAL [Concomitant]
  7. AMBIEN CR [Concomitant]
  8. XANAX [Concomitant]
  9. LEXAPRO [Concomitant]
  10. METFORMIN [Concomitant]
  11. ALEVE SODIUM [Concomitant]
  12. CO Q10 [Concomitant]
  13. BACLOFEN [Concomitant]
  14. CYANOCOBALAMIN [Concomitant]
  15. FISH OIL [Concomitant]
  16. ATORVASTATIN [Concomitant]
  17. VIT D [Concomitant]
  18. PAMELOR [Concomitant]
     Route: 048
     Dates: end: 20140101

REACTIONS (5)
  - Feeling abnormal [Unknown]
  - Pain [Unknown]
  - Abnormal behaviour [Unknown]
  - Adverse event [Unknown]
  - Flushing [Unknown]
